FAERS Safety Report 7485707-4 (Version None)
Quarter: 2011Q2

REPORT INFORMATION
  Report Type: 
  Country: None (occurrence: None)
  Receive Date: 20110517
  Receipt Date: 20091014
  Transmission Date: 20111010
  Serious: Yes (Other)
  Sender: FDA-Public Use
  Company Number: US-BAYER-2011-007077

PATIENT
  Age: 53 Year
  Sex: Male
  Weight: 102.4 kg

DRUGS (17)
  1. RETAVASE [Concomitant]
     Dosage: 10 U, UNK
     Route: 042
     Dates: start: 20061030
  2. MORPHINE [Concomitant]
     Dosage: 2 MG, UNK
     Route: 042
     Dates: start: 20061030
  3. NICARDIPINE HCL [Concomitant]
     Dosage: 300 MCG/24HR, UNK
     Route: 042
     Dates: start: 20061030
  4. TRASYLOL [Suspect]
     Indication: CORONARY ARTERY BYPASS
     Dosage: UNK
     Route: 042
     Dates: start: 20061001
  5. LISINOPRIL [Concomitant]
  6. HEPARIN [Concomitant]
     Dosage: 4000 UNITS / 1000 UNITS PER HOUR
     Route: 042
     Dates: start: 20061030
  7. PEPCID COMPLETE [Concomitant]
     Route: 048
  8. LEVAQUIN [Concomitant]
  9. NITROGLYCERIN [Concomitant]
     Dosage: 0.4 MG, UNK
     Route: 060
     Dates: start: 20061030
  10. PLAVIX [Concomitant]
     Dosage: 300 MG, UNK
     Dates: start: 20061030
  11. ASPIRIN [Concomitant]
     Dosage: 325 MG, UNK
     Route: 048
     Dates: start: 20061030
  12. FENTANYL CITRATE [Concomitant]
     Dosage: 50 MCG/24HR, UNK
     Route: 042
     Dates: start: 20061030
  13. MIDAZOLAM HCL [Concomitant]
     Dosage: 1 MG, UNK
     Route: 042
     Dates: start: 20061030
  14. REOPRO [Concomitant]
     Dosage: 17 ML/HOUR
     Route: 042
     Dates: start: 20061030
  15. PEPCID [Concomitant]
     Dosage: 20 MG, BID
     Route: 042
     Dates: start: 20061030
  16. LOPRESSOR [Concomitant]
     Dosage: 5 MG, UNK
     Route: 042
     Dates: start: 20061030
  17. OMNIPAQUE 140 [Concomitant]
     Dosage: UNK
     Dates: start: 20061031

REACTIONS (14)
  - ANXIETY [None]
  - FEAR [None]
  - DEPRESSION [None]
  - INJURY [None]
  - EMOTIONAL DISTRESS [None]
  - PAIN [None]
  - TRANSIENT ISCHAEMIC ATTACK [None]
  - RENAL INJURY [None]
  - UNEVALUABLE EVENT [None]
  - FEAR OF DEATH [None]
  - CEREBROVASCULAR ACCIDENT [None]
  - NERVOUSNESS [None]
  - MULTI-ORGAN FAILURE [None]
  - RENAL FAILURE [None]
